FAERS Safety Report 12205756 (Version 4)
Quarter: 2016Q3

REPORT INFORMATION
  Report Type: Spontaneous
  Country: IT (occurrence: IT)
  Receive Date: 20160323
  Receipt Date: 20160720
  Transmission Date: 20161109
  Serious: Yes (Hospitalization)
  Sender: FDA-Public Use
  Company Number: IT-MYLANLABS-2016M1012541

PATIENT

DRUGS (2)
  1. XANAX [Suspect]
     Active Substance: ALPRAZOLAM
     Indication: WEIGHT CONTROL
     Dosage: 10 DF, TOTAL
     Route: 048
     Dates: start: 20160118
  2. METFORMIN [Suspect]
     Active Substance: METFORMIN HYDROCHLORIDE
     Indication: WEIGHT CONTROL
     Dosage: 15 DF, TOTAL
     Route: 048
     Dates: start: 20160118

REACTIONS (4)
  - Drug abuse [Unknown]
  - Intentional overdose [Unknown]
  - Off label use [Unknown]
  - Sopor [Unknown]

NARRATIVE: CASE EVENT DATE: 20160118
